FAERS Safety Report 25357255 (Version 2)
Quarter: 2025Q2

REPORT INFORMATION
  Report Type: Report from Study
  Country: NL (occurrence: NL)
  Receive Date: 20250526
  Receipt Date: 20250623
  Transmission Date: 20250716
  Serious: Yes (Other)
  Sender: ABBVIE
  Company Number: NL-ABBVIE-6296228

PATIENT
  Age: 73 Year
  Sex: Female
  Weight: 56 kg

DRUGS (1)
  1. FOSCARBIDOPA\FOSLEVODOPA [Suspect]
     Active Substance: FOSCARBIDOPA\FOSLEVODOPA
     Indication: Parkinson^s disease
     Route: 058
     Dates: start: 20240415

REACTIONS (6)
  - Cataract [Unknown]
  - Muscle rigidity [Not Recovered/Not Resolved]
  - Abnormal dreams [Not Recovered/Not Resolved]
  - Dyskinesia [Not Recovered/Not Resolved]
  - Infusion site induration [Not Recovered/Not Resolved]
  - On and off phenomenon [Not Recovered/Not Resolved]
